FAERS Safety Report 18781608 (Version 1)
Quarter: 2021Q1

REPORT INFORMATION
  Report Type: Spontaneous
  Country: US (occurrence: US)
  Receive Date: 20210125
  Receipt Date: 20210125
  Transmission Date: 20210419
  Serious: No
  Sender: FDA-Public Use
  Company Number: US-SA-2021SA020253

PATIENT
  Sex: Male

DRUGS (20)
  1. DUPIXENT [Suspect]
     Active Substance: DUPILUMAB
     Indication: DERMATITIS ATOPIC
     Dosage: UNK UNK, QOW
     Route: 058
  2. DOXYCYCLINE HYCLATE. [Concomitant]
     Active Substance: DOXYCYCLINE HYCLATE
  3. PLAQUENIL [Concomitant]
     Active Substance: HYDROXYCHLOROQUINE SULFATE
  4. VENTOLIN HFA [Concomitant]
     Active Substance: ALBUTEROL SULFATE
     Dosage: UNK UG
  5. GABITRIL [Concomitant]
     Active Substance: TIAGABINE HYDROCHLORIDE
  6. METOPROLOL SUCCINATE. [Concomitant]
     Active Substance: METOPROLOL SUCCINATE
  7. ONFI [Concomitant]
     Active Substance: CLOBAZAM
  8. MALTODEXTRIN [Concomitant]
     Active Substance: MALTODEXTRIN
  9. HYDROXYCHLOROQUINE SULFATE. [Concomitant]
     Active Substance: HYDROXYCHLOROQUINE SULFATE
     Dosage: 200 MG
  10. DOXICYCLINE [DOXYCYCLINE] [Concomitant]
     Active Substance: DOXYCYCLINE
  11. SINGULAIR [Concomitant]
     Active Substance: MONTELUKAST SODIUM
     Dosage: 1 UNK
  12. VIMPAT [Concomitant]
     Active Substance: LACOSAMIDE
  13. VITA B [VITAMIN B12 NOS] [Concomitant]
  14. MONTELUKAST SODIUM. [Concomitant]
     Active Substance: MONTELUKAST SODIUM
     Dosage: 10 MG
  15. AMITIZA [Concomitant]
     Active Substance: LUBIPROSTONE
     Dosage: 200MG
  16. PIMECROLIMUS. [Concomitant]
     Active Substance: PIMECROLIMUS
  17. TACROLIMUS. [Concomitant]
     Active Substance: TACROLIMUS
  18. ASPERGILLUS NIGER VAR NIGER [Concomitant]
     Active Substance: ASPERGILLUS NIGER VAR. NIGER
  19. ALPHA?GALACTOSIDASE [Concomitant]
     Active Substance: AGALSIDASE BETA
  20. SALBUTAMOL SULFATE [Concomitant]
     Active Substance: ALBUTEROL SULFATE

REACTIONS (2)
  - Stress [Unknown]
  - Rash [Unknown]
